FAERS Safety Report 9692211 (Version 1)
Quarter: 2013Q4

REPORT INFORMATION
  Report Type: Spontaneous
  Country: TR (occurrence: TR)
  Receive Date: 20131118
  Receipt Date: 20131118
  Transmission Date: 20140711
  Serious: Yes (Other)
  Sender: FDA-Public Use
  Company Number: TR-ROCHE-1304605

PATIENT
  Age: 37 Year
  Sex: Male

DRUGS (2)
  1. CLONAZEPAM [Suspect]
     Indication: ANXIETY
     Dosage: INCREASED THE DOSE OF CLONAZEPAM TO 60 MG/DAY
     Route: 065
  2. CLONAZEPAM [Suspect]
     Indication: EPILEPSY

REACTIONS (1)
  - Loss of consciousness [Unknown]
